FAERS Safety Report 12059877 (Version 2)
Quarter: 2016Q1

REPORT INFORMATION
  Report Type: Spontaneous
  Country: JP (occurrence: JP)
  Receive Date: 20160210
  Receipt Date: 20160304
  Transmission Date: 20160526
  Serious: Yes (Death)
  Sender: FDA-Public Use
  Company Number: JP-SA-2015SA209452

PATIENT
  Age: 79 Year
  Sex: Male
  Weight: 53 kg

DRUGS (16)
  1. PREDONINE [Concomitant]
     Active Substance: PREDNISOLONE\PREDNISOLONE ACETATE\PREDNISOLONE SODIUM SUCCINATE
     Route: 048
     Dates: start: 20151201
  2. G-LASTA [Concomitant]
     Active Substance: PEGFILGRASTIM
     Dates: start: 20151202, end: 20151202
  3. FUROSEMIDE. [Concomitant]
     Active Substance: FUROSEMIDE
     Dosage: FREQUENCY: EVERY OTHER DAY
     Route: 048
     Dates: start: 20150929
  4. CASODEX [Concomitant]
     Active Substance: BICALUTAMIDE
     Indication: PROSTATE CANCER
     Dates: start: 20100520
  5. ESTRACYT [Concomitant]
     Active Substance: ESTRAMUSTINE PHOSPHATE SODIUM
     Indication: HORMONE-REFRACTORY PROSTATE CANCER
  6. GRANISETRON [Concomitant]
     Active Substance: GRANISETRON
     Indication: PREMEDICATION
     Dates: start: 20151201, end: 20151201
  7. ZOLADEX LA [Concomitant]
     Active Substance: GOSERELIN ACETATE
     Indication: PROSTATE CANCER
     Dosage: FREQUENCY: EVERY 12 WEEKS DOSE:10.8 UNIT(S)
     Route: 058
     Dates: start: 20141225
  8. ODYNE [Concomitant]
     Active Substance: FLUTAMIDE
     Indication: HORMONE-REFRACTORY PROSTATE CANCER
  9. ZOMETA [Concomitant]
     Active Substance: ZOLEDRONIC ACID
     Indication: PROSTATE CANCER
     Dosage: EVERY 4 WEEKS
     Route: 041
     Dates: start: 20100617
  10. ROXITHROMYCIN [Concomitant]
     Active Substance: ROXITHROMYCIN
     Route: 048
     Dates: start: 20150929
  11. ZOLADEX [Concomitant]
     Active Substance: GOSERELIN ACETATE
     Indication: PROSTATE CANCER
     Dates: start: 20100520
  12. JEVTANA [Suspect]
     Active Substance: CABAZITAXEL
     Indication: PROSTATE CANCER
     Route: 042
     Dates: start: 20151201, end: 20151201
  13. POLARAMINE [Concomitant]
     Active Substance: DEXCHLORPHENIRAMINE MALEATE
     Indication: PREMEDICATION
     Dates: start: 20151201, end: 20151201
  14. TAPIZOL [Concomitant]
     Active Substance: LANSOPRAZOLE
     Route: 048
     Dates: start: 20151027
  15. LOBU [Concomitant]
     Active Substance: LOBUCAVIR
     Route: 048
     Dates: start: 20140610
  16. DEXART [Concomitant]
     Active Substance: DEXAMETHASONE SODIUM PHOSPHATE
     Indication: PREMEDICATION
     Dates: start: 20151201, end: 20151201

REACTIONS (5)
  - Malaise [Fatal]
  - Respiratory failure [Fatal]
  - Febrile neutropenia [Fatal]
  - Platelet count decreased [Fatal]
  - Pneumonia [Fatal]

NARRATIVE: CASE EVENT DATE: 20151208
